FAERS Safety Report 15683191 (Version 1)
Quarter: 2018Q4

REPORT INFORMATION
  Report Type: Spontaneous
  Country: US (occurrence: US)
  Receive Date: 20181204
  Receipt Date: 20181204
  Transmission Date: 20190205
  Serious: No
  Sender: FDA-Public Use
  Company Number: US-ROCHE-2223789

PATIENT
  Age: 57 Year
  Sex: Female

DRUGS (3)
  1. BIOTIN [Concomitant]
     Active Substance: BIOTIN
  2. OCREVUS [Suspect]
     Active Substance: OCRELIZUMAB
     Route: 042
  3. OCREVUS [Suspect]
     Active Substance: OCRELIZUMAB
     Indication: RELAPSING MULTIPLE SCLEROSIS
     Dosage: FIRST SPLIT DOSE 2 WEEKS APART ABOUT ONE YEAR AGO
     Route: 042

REACTIONS (2)
  - Lymphocyte count decreased [Not Recovered/Not Resolved]
  - Rash pustular [Recovered/Resolved]

NARRATIVE: CASE EVENT DATE: 2018
